FAERS Safety Report 23934025 (Version 1)
Quarter: 2024Q2

REPORT INFORMATION
  Report Type: Spontaneous
  Country: ID (occurrence: ID)
  Receive Date: 20240603
  Receipt Date: 20240603
  Transmission Date: 20240715
  Serious: Yes (Death, Other)
  Sender: FDA-Public Use
  Company Number: ID-002147023-NVSC2024ID115968

PATIENT
  Age: 40 Year

DRUGS (2)
  1. LETROZOLE [Suspect]
     Active Substance: LETROZOLE
     Indication: Breast cancer metastatic
     Dosage: UNK
     Route: 065
  2. RIBOCICLIB [Suspect]
     Active Substance: RIBOCICLIB
     Indication: Breast cancer metastatic
     Dosage: UNK
     Route: 065

REACTIONS (1)
  - Pleural effusion [Fatal]
